FAERS Safety Report 14019684 (Version 1)
Quarter: 2017Q3

REPORT INFORMATION
  Report Type: Spontaneous
  Country: GB (occurrence: GB)
  Receive Date: 20170928
  Receipt Date: 20170928
  Transmission Date: 20171128
  Serious: Yes (Death, Other)
  Sender: FDA-Public Use
  Company Number: GB-PFIZER INC-2017416896

PATIENT
  Age: 35 Year
  Sex: Male

DRUGS (3)
  1. PREGABALIN. [Suspect]
     Active Substance: PREGABALIN
     Dosage: UNK
  2. DIAZEPAM. [Suspect]
     Active Substance: DIAZEPAM
     Dosage: UNK
  3. METHADONE [Suspect]
     Active Substance: METHADONE HYDROCHLORIDE
     Dosage: UNK

REACTIONS (3)
  - Toxicity to various agents [Fatal]
  - Unresponsive to stimuli [Unknown]
  - Drug dependence [Fatal]

NARRATIVE: CASE EVENT DATE: 20161126
